FAERS Safety Report 8100621-9 (Version None)
Quarter: 2012Q1

REPORT INFORMATION
  Report Type: 
  Country: None (occurrence: None)
  Receive Date: 20120131
  Receipt Date: 20120123
  Transmission Date: 20120608
  Serious: Yes (Hospitalization)
  Sender: FDA-Public Use
  Company Number: FR-ABBOTT-12P-056-0898980-00

PATIENT
  Sex: Male

DRUGS (4)
  1. OLMESARTAN MEDOXOMIL AND HYDROCHLOROTHIZIDE [Concomitant]
     Indication: HYPERTENSION
  2. ENANTONE 11.25 MG [Suspect]
     Indication: PROSTATE CANCER
     Route: 050
     Dates: start: 20030101, end: 20111101
  3. NEBIVOLOL HCL [Concomitant]
     Indication: HYPERTENSION
  4. ASPIRIN [Concomitant]
     Indication: PRODUCT USED FOR UNKNOWN INDICATION

REACTIONS (2)
  - GRAND MAL CONVULSION [None]
  - CONFUSIONAL STATE [None]
